FAERS Safety Report 7736755-8 (Version None)
Quarter: 2011Q3

REPORT INFORMATION
  Report Type: 
  Country: None (occurrence: None)
  Receive Date: 20110908
  Receipt Date: 20110901
  Transmission Date: 20111222
  Serious: Yes (Other)
  Sender: FDA-Public Use
  Company Number: US-AMGEN-USASP2011045147

PATIENT
  Age: 49 Year
  Sex: Male

DRUGS (2)
  1. VITAMIN D [Concomitant]
  2. SENSIPAR [Suspect]
     Indication: HYPERPARATHYROIDISM SECONDARY
     Dates: start: 20100801, end: 20110501

REACTIONS (3)
  - RASH PAPULAR [None]
  - RASH [None]
  - HYPERSENSITIVITY [None]
